FAERS Safety Report 24990627 (Version 1)
Quarter: 2025Q1

REPORT INFORMATION
  Report Type: Spontaneous
  Country: CA (occurrence: CA)
  Receive Date: 20250220
  Receipt Date: 20250220
  Transmission Date: 20250408
  Serious: Yes (Other)
  Sender: NOVARTIS
  Company Number: CA-002147023-NVSC2025CA028417

PATIENT
  Age: 22 Year
  Sex: Female
  Weight: 78 kg

DRUGS (3)
  1. OCTREOTIDE [Suspect]
     Active Substance: OCTREOTIDE
     Indication: Prophylaxis
     Dosage: 1.0 DOSAGE FORM, QMO (KIT, THERAPY DURATION 1.0 DAYS)
     Route: 030
  2. OCTREOTIDE [Suspect]
     Active Substance: OCTREOTIDE
     Indication: Gastrointestinal haemorrhage
  3. OCTREOTIDE [Suspect]
     Active Substance: OCTREOTIDE

REACTIONS (3)
  - Injection site mass [Recovering/Resolving]
  - Pain [Recovering/Resolving]
  - Tenderness [Recovering/Resolving]
